FAERS Safety Report 7325377-9 (Version None)
Quarter: 2011Q1

REPORT INFORMATION
  Report Type: 
  Country: None (occurrence: None)
  Receive Date: 20110302
  Receipt Date: 20110220
  Transmission Date: 20110831
  Serious: Yes (Other)
  Sender: FDA-Public Use
  Company Number: CA-JNJFOC-20101205097

PATIENT
  Sex: Female

DRUGS (3)
  1. METHOTREXATE [Concomitant]
  2. REMICADE [Suspect]
     Indication: RHEUMATOID ARTHRITIS
     Route: 042
  3. PLAQUENIL [Concomitant]

REACTIONS (4)
  - GRANULOMA [None]
  - HEPATIC ENZYME INCREASED [None]
  - LUPUS-LIKE SYNDROME [None]
  - WHITE BLOOD CELL COUNT INCREASED [None]
